FAERS Safety Report 5799358-0 (Version None)
Quarter: 2008Q3

REPORT INFORMATION
  Report Type: 
  Country: None (occurrence: None)
  Receive Date: 20080702
  Receipt Date: 20080623
  Transmission Date: 20090109
  Serious: Yes (Other)
  Sender: FDA-Public Use
  Company Number: GB-PFIZER INC-2008053409

PATIENT
  Age: 41 Year
  Sex: Female
  Weight: 86 kg

DRUGS (8)
  1. CHANTIX [Suspect]
     Indication: SMOKING CESSATION THERAPY
     Route: 048
     Dates: start: 20080425, end: 20080506
  2. CHLORPROMAZINE [Concomitant]
     Route: 048
  3. BECLOMETHASONE DIPROPIONATE [Concomitant]
     Route: 055
  4. ACETAMINOPHEN W/ CODEINE [Concomitant]
     Route: 048
  5. MIRTAZAPINE [Concomitant]
     Route: 048
  6. ORLISTAT [Concomitant]
     Route: 048
  7. ALBUTEROL [Concomitant]
     Route: 055
  8. SALMETEROL [Concomitant]
     Route: 055

REACTIONS (1)
  - HYPOAESTHESIA FACIAL [None]
